FAERS Safety Report 18720433 (Version 1)
Quarter: 2021Q1

REPORT INFORMATION
  Report Type: Spontaneous
  Country: DK (occurrence: DK)
  Receive Date: 20210108
  Receipt Date: 20210108
  Transmission Date: 20210419
  Serious: Yes (Other)
  Sender: FDA-Public Use
  Company Number: DK-TEVA-2021-DK-1865928

PATIENT
  Age: 48 Year
  Sex: Male

DRUGS (12)
  1. PREDNISOLONE. [Suspect]
     Active Substance: PREDNISOLONE
     Dosage: STRENGTH: 5 MG., 50MG
     Route: 048
     Dates: start: 20190211, end: 20190219
  2. PREDNISOLONE. [Suspect]
     Active Substance: PREDNISOLONE
     Indication: DIARRHOEA
     Dosage: STRENGTH: UNKNOWN.,12.5MG
     Route: 048
     Dates: start: 20171110, end: 20171122
  3. PREDNISOLONE. [Suspect]
     Active Substance: PREDNISOLONE
     Dosage: STRENGTH: 75 MG.
     Route: 048
     Dates: start: 20170523
  4. CALCIUM OG D?VITAMIN [Concomitant]
     Indication: VITAMIN SUPPLEMENTATION
     Dates: start: 20110802, end: 20200824
  5. PREDNISOLONE. [Suspect]
     Active Substance: PREDNISOLONE
     Dosage: STRENGTH: UNKNOWN., 100MG
     Route: 048
     Dates: start: 201108
  6. PREDNISOLONE. [Suspect]
     Active Substance: PREDNISOLONE
     Dosage: STRENGTH: UNKNOWN.100MG
     Route: 048
     Dates: start: 20170420
  7. PREDNISOLONE. [Suspect]
     Active Substance: PREDNISOLONE
     Dosage: STRENGTH: 25 MG..50MG
     Route: 048
     Dates: start: 20190219, end: 201905
  8. SOLU?MEDROL [Concomitant]
     Active Substance: METHYLPREDNISOLONE SODIUM SUCCINATE
     Dosage: STRENGHT: UNKNOWN.100MG
     Dates: start: 201108
  9. KEYTRUDA [Concomitant]
     Active Substance: PEMBROLIZUMAB
     Indication: METASTASIS
     Dosage: STRENGTH: UNKNOWN.?DOSAGE: UNKNOWN.
     Dates: start: 20170920
  10. PREDNISOLONE. [Suspect]
     Active Substance: PREDNISOLONE
     Dosage: STRENGTH: 25 MG.?DOSAGE: 0.2 TABLET MORNING.
     Route: 048
     Dates: start: 20181117, end: 20190119
  11. PREDNISOLONE. [Suspect]
     Active Substance: PREDNISOLONE
     Dosage: STRENGTH: UNKNOWN.25MG
     Route: 048
     Dates: start: 20171123, end: 2017
  12. PREDNISOLONE. [Suspect]
     Active Substance: PREDNISOLONE
     Indication: BLOOD CORTICOTROPHIN
     Dosage: STRENGTH: UNKNOWN, 25MG
     Route: 048
     Dates: start: 20171031, end: 20171109

REACTIONS (3)
  - Spinal fracture [Unknown]
  - Osteoporosis [Not Recovered/Not Resolved]
  - Back pain [Unknown]

NARRATIVE: CASE EVENT DATE: 201908
